FAERS Safety Report 14684922 (Version 2)
Quarter: 2018Q2

REPORT INFORMATION
  Report Type: Report from Study
  Country: US (occurrence: US)
  Receive Date: 20180327
  Receipt Date: 20180628
  Transmission Date: 20180711
  Serious: No
  Sender: FDA-Public Use
  Company Number: US-CLOVIS ONCOLOGY-CLO-2018-000158

PATIENT
  Age: 71 Year
  Sex: Female

DRUGS (1)
  1. RUBRACA [Suspect]
     Active Substance: RUCAPARIB CAMSYLATE
     Indication: OVARIAN CANCER
     Dosage: 300 MG, BID
     Route: 048
     Dates: start: 20180206

REACTIONS (7)
  - Sinusitis [Recovering/Resolving]
  - Fatigue [Unknown]
  - Nausea [Recovered/Resolved]
  - Abdominal pain upper [Unknown]
  - Vomiting [Unknown]
  - Constipation [Recovering/Resolving]
  - Underdose [Unknown]

NARRATIVE: CASE EVENT DATE: 2018
